FAERS Safety Report 5659557-5 (Version None)
Quarter: 2008Q1

REPORT INFORMATION
  Report Type: 
  Country: None (occurrence: None)
  Receive Date: 20080311
  Receipt Date: 20080305
  Transmission Date: 20080703
  Serious: Yes (Other)
  Sender: FDA-Public Use
  Company Number: US-ASTRAZENECA-2008UW04491

PATIENT
  Age: 78 Year
  Sex: Female

DRUGS (8)
  1. PULMICORT RESPULES [Suspect]
     Indication: CHRONIC OBSTRUCTIVE PULMONARY DISEASE
     Route: 055
  2. PULMICORT RESPULES [Suspect]
     Indication: ASTHMA
     Route: 055
  3. BROVANA [Suspect]
  4. BROVANA [Suspect]
  5. TENORMIN [Concomitant]
  6. ASPIRIN [Concomitant]
  7. DARVOCET [Concomitant]
  8. VALIUM O2 [Concomitant]

REACTIONS (2)
  - BLOOD PRESSURE DECREASED [None]
  - HEADACHE [None]
